FAERS Safety Report 7173237-9 (Version None)
Quarter: 2010Q4

REPORT INFORMATION
  Report Type: 
  Country: None (occurrence: None)
  Receive Date: 20101219
  Receipt Date: 20100223
  Transmission Date: 20110411
  Serious: No
  Sender: FDA-Public Use
  Company Number: US-AMGEN-KDL394749

PATIENT

DRUGS (7)
  1. ENBREL [Suspect]
     Indication: PRODUCT USED FOR UNKNOWN INDICATION
     Dosage: 50 ML, 2 TIMES/WK
  2. METFORMIN [Concomitant]
     Dosage: 500 MG, UNK
     Route: 048
  3. SIMVASTATIN [Concomitant]
     Dosage: 80 MG, UNK
     Route: 048
  4. CLINDAMYCIN [Concomitant]
     Dosage: 1 %, UNK
  5. METRONIDAZOLE [Concomitant]
     Dosage: .75 %, UNK
  6. ACETYLSALICYLIC ACID [Concomitant]
     Dosage: 81 MG, UNK
     Route: 048
  7. MINOCYCLINE HCL [Concomitant]
     Dosage: 100 MG, UNK
     Route: 048

REACTIONS (3)
  - ACNE [None]
  - ACNE PUSTULAR [None]
  - DIABETIC NEUROPATHY [None]
